FAERS Safety Report 4661347-7 (Version None)
Quarter: 2005Q2

REPORT INFORMATION
  Report Type: 
  Country: None (occurrence: None)
  Receive Date: 20050512
  Receipt Date: 20050504
  Transmission Date: 20051028
  Serious: Yes (Disabling, Other)
  Sender: FDA-Public Use
  Company Number: 05-05-0737

PATIENT

DRUGS (3)
  1. ALBUTEROL SULFATE [Suspect]
     Dosage: MDI PRN INHALATION
     Route: 055
  2. PREDNISOLONE [Suspect]
     Indication: ASTHMA EXACERBATION PROPHYLAXIS
     Dosage: 40MG QD ORAL
     Route: 048
  3. LAMOTRIGINE [Concomitant]

REACTIONS (4)
  - CONDITION AGGRAVATED [None]
  - CONVULSION [None]
  - GENERAL PHYSICAL HEALTH DETERIORATION [None]
  - IMPAIRED WORK ABILITY [None]
